FAERS Safety Report 21362349 (Version 2)
Quarter: 2022Q3

REPORT INFORMATION
  Report Type: Spontaneous
  Country: GB (occurrence: GB)
  Receive Date: 20220922
  Receipt Date: 20220926
  Transmission Date: 20221027
  Serious: Yes (Other)
  Sender: FDA-Public Use
  Company Number: GB-TEVA-2022-GB-2036410

PATIENT
  Sex: Male

DRUGS (1)
  1. AJOVY [Suspect]
     Active Substance: FREMANEZUMAB-VFRM
     Indication: Migraine
     Dosage: FORM STRENGTH AND UNIT DOSE: 225MILLIGRAM, 225MG MONTHLY
     Route: 058

REACTIONS (2)
  - Urticaria [Recovered/Resolved]
  - Injection site urticaria [Recovered/Resolved]
